FAERS Safety Report 8569543 (Version 4)
Quarter: 2014Q2

REPORT INFORMATION
  Report Type: Spontaneous
  Country: US (occurrence: US)
  Receive Date: 20120518
  Receipt Date: 20140411
  Transmission Date: 20141212
  Serious: Yes (Hospitalization, Disabling, Other)
  Sender: FDA-Public Use
  Company Number: US-ASTRAZENECA-2012SE30510

PATIENT
  Age: 52 Year
  Sex: Female

DRUGS (18)
  1. SYMBICORT PMDI [Suspect]
     Indication: CHRONIC OBSTRUCTIVE PULMONARY DISEASE
     Dosage: 160/4.5 MCG, BID
     Route: 055
  2. NEXIUM [Suspect]
     Indication: GASTROOESOPHAGEAL REFLUX DISEASE
     Route: 048
     Dates: start: 2006, end: 2007
  3. NEXIUM [Suspect]
     Indication: ULCER HAEMORRHAGE
     Route: 048
     Dates: start: 2006, end: 2007
  4. NEXIUM [Suspect]
     Indication: GASTROOESOPHAGEAL REFLUX DISEASE
     Route: 048
     Dates: start: 2012, end: 2012
  5. NEXIUM [Suspect]
     Indication: ULCER HAEMORRHAGE
     Route: 048
     Dates: start: 2012, end: 2012
  6. NEXIUM [Suspect]
     Indication: GASTROOESOPHAGEAL REFLUX DISEASE
     Route: 048
     Dates: start: 2012, end: 20140401
  7. NEXIUM [Suspect]
     Indication: ULCER HAEMORRHAGE
     Route: 048
     Dates: start: 2012, end: 20140401
  8. FLUTICASONE [Concomitant]
     Indication: DYSPNOEA
     Route: 055
  9. AMITRIPTYLINE [Concomitant]
     Indication: SLEEP DISORDER
     Route: 048
  10. XANAX [Concomitant]
  11. ATROVENT HSA [Concomitant]
     Indication: CHRONIC OBSTRUCTIVE PULMONARY DISEASE
     Route: 055
  12. CALCIUM [Concomitant]
     Indication: HAIR DISORDER
     Dosage: DAILY
     Route: 048
  13. VITAMIN D [Concomitant]
     Indication: HAIR DISORDER
     Dosage: DAILY
     Route: 048
  14. IRON [Concomitant]
     Indication: BLOOD DISORDER
     Dosage: DAILY
     Route: 048
  15. STOOL SOFTNER [Concomitant]
     Indication: IRON METABOLISM DISORDER
     Dosage: UNKNOWN 2 CAPSULES HS AND 1 CAPSULE AM
     Route: 048
  16. MUCAS RELIEF [Concomitant]
     Indication: PNEUMONIA
     Dosage: 400 MG QHS
     Route: 048
  17. RANITIDINE OVER THE COUNTER [Concomitant]
     Indication: GASTROOESOPHAGEAL REFLUX DISEASE
     Route: 048
  18. NARCO [Concomitant]

REACTIONS (21)
  - Ulcer [Unknown]
  - Hernia [Unknown]
  - Pneumonia [Unknown]
  - Peptic ulcer haemorrhage [Unknown]
  - Dyspnoea [Unknown]
  - Gait disturbance [Unknown]
  - Haemorrhage [Unknown]
  - Mitral valve atresia [Unknown]
  - Cervicobrachial syndrome [Unknown]
  - Loss of consciousness [Unknown]
  - Intervertebral disc protrusion [Unknown]
  - Road traffic accident [Unknown]
  - Palpitations [Unknown]
  - Pain [Unknown]
  - Nail disorder [Unknown]
  - Respiration abnormal [Unknown]
  - Condition aggravated [Unknown]
  - Alopecia [Unknown]
  - Drug dose omission [Unknown]
  - Off label use [Unknown]
  - Intentional product misuse [Unknown]
